FAERS Safety Report 7867899-8 (Version None)
Quarter: 2011Q4

REPORT INFORMATION
  Report Type: 
  Country: None (occurrence: None)
  Receive Date: 20111028
  Receipt Date: 20111021
  Transmission Date: 20120403
  Serious: Yes (Death, Hospitalization)
  Sender: FDA-Public Use
  Company Number: FR-MILLENNIUM PHARMACEUTICALS, INC.-2011-04684

PATIENT

DRUGS (13)
  1. ZELITREX                           /01269701/ [Concomitant]
     Indication: PRODUCT USED FOR UNKNOWN INDICATION
     Dosage: 500 MG, UNK
     Dates: start: 20110801, end: 20110905
  2. VELCADE [Suspect]
     Indication: MULTIPLE MYELOMA
     Dosage: 2.25 MG, UNK
     Route: 042
     Dates: start: 20110609, end: 20110617
  3. VELCADE [Suspect]
     Dosage: 1.70 MG, UNK
     Route: 042
     Dates: start: 20110623, end: 20110630
  4. VELCADE [Suspect]
     Dosage: 2.25 UNK, UNK
     Route: 042
     Dates: start: 20110801
  5. VELCADE [Suspect]
     Dosage: 2 MG, UNK
     Route: 042
     Dates: start: 20110902, end: 20110909
  6. NEXIUM [Concomitant]
     Dosage: 20 MG, UNK
     Route: 048
     Dates: start: 20110701, end: 20110905
  7. DEXAMETHASONE [Concomitant]
     Indication: MULTIPLE MYELOMA
     Dosage: 20 MG, UNK
     Route: 048
     Dates: start: 20110609
  8. OXYCONTIN [Concomitant]
     Indication: PAIN
     Dosage: UNK
     Route: 048
     Dates: start: 20110701
  9. ACETAMINOPHEN [Concomitant]
     Route: 048
  10. MIRTAZAPINE [Concomitant]
     Dosage: 15 MG, UNK
     Route: 048
     Dates: start: 20110701, end: 20110906
  11. ALLOPURINOL [Concomitant]
     Indication: PAIN
     Dosage: 100 MG, UNK
     Route: 048
     Dates: start: 20110701
  12. SECTRAL [Concomitant]
     Dosage: 200 MG, UNK
     Route: 048
     Dates: end: 20110905
  13. OXYCODONE HCL [Concomitant]
     Indication: PAIN
     Dosage: UNK
     Route: 065
     Dates: start: 20110701

REACTIONS (2)
  - ENCEPHALOPATHY [None]
  - EXTRAPYRAMIDAL DISORDER [None]
